FAERS Safety Report 13703418 (Version 1)
Quarter: 2017Q2

REPORT INFORMATION
  Report Type: Spontaneous
  Country: US (occurrence: US)
  Receive Date: 20170629
  Receipt Date: 20170629
  Transmission Date: 20170830
  Serious: No
  Sender: FDA-Public Use
  Company Number: GXBR2017US001402

PATIENT
  Sex: Female
  Weight: 59.86 kg

DRUGS (2)
  1. SYSTANE (HYPROMELLOSE 2910 (4000 MPA.S)) [Concomitant]
     Active Substance: HYPROMELLOSE 2910 (4000 MPA.S)
     Indication: EYE PAIN
     Dosage: 1 GTT 3 OR 4 TIMES A DAY, QD
     Route: 047
     Dates: start: 20160405
  2. TRIMETHOPRIM/POLYMYXIN B [Suspect]
     Active Substance: POLYMYXIN B SULFATE\TRIMETHOPRIM
     Indication: EYE PAIN
     Dosage: 1 GTT 3 OR 4 TIMES A DAY
     Route: 047
     Dates: start: 20170405, end: 20170412

REACTIONS (3)
  - Eyelid oedema [Recovering/Resolving]
  - Sensation of foreign body [Recovering/Resolving]
  - Eye burns [Recovering/Resolving]
